FAERS Safety Report 20081555 (Version 1)
Quarter: 2021Q4

REPORT INFORMATION
  Report Type: Spontaneous
  Country: US (occurrence: None)
  Receive Date: 20211116
  Receipt Date: 20211116
  Transmission Date: 20220304
  Serious: No
  Sender: FDA-Public Use
  Company Number: None

PATIENT

DRUGS (1)
  1. PHENYTOIN [Suspect]
     Active Substance: PHENYTOIN

REACTIONS (4)
  - Product dispensing error [None]
  - Incorrect dose administered [None]
  - Drug level increased [None]
  - Fall [None]
